FAERS Safety Report 8681459 (Version 3)
Quarter: 2012Q4

REPORT INFORMATION
  Report Type: Spontaneous
  Country: US (occurrence: None)
  Receive Date: 20120706
  Receipt Date: 20120914
  Transmission Date: 20130627
  Serious: Yes (Other)
  Sender: FDA-Public Use
  Company Number: ADR-2012-01211

PATIENT
  Age: 26 Year
  Sex: Female

DRUGS (2)
  1. BACLOFEN [Suspect]
     Dosage: 740.0 MCG/DAY
  2. MORPHINE [Concomitant]

REACTIONS (8)
  - DEVICE DISLOCATION [None]
  - MUSCLE RIGIDITY [None]
  - CONVULSION [None]
  - CRYING [None]
  - MUSCLE SPASTICITY [None]
  - DEVICE DAMAGE [None]
  - UNDERDOSE [None]
  - SPINAL COLUMN STENOSIS [None]
